FAERS Safety Report 8415988-1 (Version None)
Quarter: 2012Q2

REPORT INFORMATION
  Report Type: 
  Country: None (occurrence: None)
  Receive Date: 20120606
  Receipt Date: 20120531
  Transmission Date: 20120825
  Serious: No
  Sender: FDA-Public Use
  Company Number: US-PFIZER INC-2012131550

PATIENT
  Sex: Female
  Weight: 90.703 kg

DRUGS (3)
  1. ADVIL PM [Suspect]
     Indication: MUSCLE SPASMS
  2. ADVIL PM [Suspect]
     Indication: PAIN
     Dosage: 200 MG, 2X/DAY
     Route: 048
     Dates: start: 20120523, end: 20120524
  3. ADVIL PM [Suspect]
     Indication: INSOMNIA

REACTIONS (1)
  - DRUG INEFFECTIVE [None]
